FAERS Safety Report 14940488 (Version 1)
Quarter: 2018Q2

REPORT INFORMATION
  Report Type: Spontaneous
  Country: DE (occurrence: DE)
  Receive Date: 20180525
  Receipt Date: 20180525
  Transmission Date: 20180711
  Serious: Yes (Hospitalization)
  Sender: FDA-Public Use
  Company Number: DE-PFIZER INC-2018211997

PATIENT
  Age: 92 Year
  Sex: Female

DRUGS (8)
  1. IBUPROFEN. [Suspect]
     Active Substance: IBUPROFEN
     Dosage: 600 MG, AS NEEDED 1-2 TABLETS
  2. ACETYLSALICYLSAEURE [Suspect]
     Active Substance: ASPIRIN
     Dosage: 100 MG, 1X/DAY 1-0-0-0
  3. CARMEN ACE [Concomitant]
     Active Substance: ENALAPRIL MALEATE\LERCANIDIPINE HYDROCHLORIDE
     Dosage: 20 MG/10 MG, 1X/DAY
  4. TORASEMID [Concomitant]
     Active Substance: TORSEMIDE
     Dosage: 10 MG, 1X/DAY 1-0-0-0
  5. SELENASE [Concomitant]
     Dosage: 300 MG, ^1X /2. D^
  6. COLECALCIFEROL [Concomitant]
     Active Substance: CHOLECALCIFEROL
     Dosage: 1000 IU, 2X/DAY 1-0-1-0
  7. CARMEN [Concomitant]
     Active Substance: LERCANIDIPINE
     Dosage: 10 MG, UNK
  8. METAMIZOLE [Concomitant]
     Active Substance: METAMIZOLE
     Dosage: 1-1-1-0

REACTIONS (2)
  - Nausea [Unknown]
  - Haematemesis [Unknown]
